FAERS Safety Report 21744657 (Version 1)
Quarter: 2022Q4

REPORT INFORMATION
  Report Type: Spontaneous
  Country: CN (occurrence: CN)
  Receive Date: 20221218
  Receipt Date: 20221218
  Transmission Date: 20230113
  Serious: Yes (Hospitalization)
  Sender: FDA-Public Use
  Company Number: CN-STRIDES ARCOLAB LIMITED-2022SP016938

PATIENT
  Age: 52 Year
  Sex: Male

DRUGS (13)
  1. PREDNISOLONE [Suspect]
     Active Substance: PREDNISOLONE
     Indication: Interstitial lung disease
     Dosage: UNK; (MAINTENANCE THERAPY)
     Route: 065
  2. FUROSEMIDE [Suspect]
     Active Substance: FUROSEMIDE
     Indication: Reduction of increased intracranial pressure
     Dosage: UNK; (DEHYDRATION)
     Route: 065
  3. RITUXIMAB [Suspect]
     Active Substance: RITUXIMAB
     Indication: Chronic lymphocytic leukaemia
     Dosage: 500 MILLIGRAM/SQ. METER, CYCLICAL; (D0; TOTAL 6 CYCLES); (RFC REGIMEN)
     Route: 065
     Dates: start: 201506
  4. RITUXIMAB [Suspect]
     Active Substance: RITUXIMAB
     Dosage: UNK, CYCLICAL; (1 CYCLE); RFC REGIMEN
     Route: 065
     Dates: start: 202009
  5. RITUXIMAB [Suspect]
     Active Substance: RITUXIMAB
     Dosage: 500 MILLIGRAM/SQ. METER, CYCLICAL; (D1, 28 D/CYCLE)
     Route: 065
     Dates: start: 202010
  6. FLUDARABINE [Suspect]
     Active Substance: FLUDARABINE PHOSPHATE
     Indication: Chronic lymphocytic leukaemia
     Dosage: 25 MILLIGRAM/SQ. METER, CYCLICAL; (D1-D3; TOTAL 6 CYCLES); ((RFC REGIMEN)
     Route: 065
     Dates: start: 201506
  7. FLUDARABINE [Suspect]
     Active Substance: FLUDARABINE PHOSPHATE
     Dosage: UNK UNK, CYCLICAL; RFC REGIMEN
     Route: 065
     Dates: start: 202009
  8. CYCLOPHOSPHAMIDE [Suspect]
     Active Substance: CYCLOPHOSPHAMIDE
     Indication: Chronic lymphocytic leukaemia
     Dosage: 250 MILLIGRAM/SQ. METER, CYCLICAL; D1-D3: TOTAL 6 CYCLES; (RFC REGIMEN)
     Route: 065
     Dates: start: 201506
  9. CYCLOPHOSPHAMIDE [Suspect]
     Active Substance: CYCLOPHOSPHAMIDE
     Dosage: UNK, CYCLICAL; (1 CYCLE)
     Route: 065
     Dates: start: 202009
  10. IBRUTINIB [Suspect]
     Active Substance: IBRUTINIB
     Indication: Chronic lymphocytic leukaemia
     Dosage: 420 MILLIGRAM; PER DAY
     Route: 065
     Dates: start: 202010
  11. MANNITOL [Suspect]
     Active Substance: MANNITOL
     Indication: Reduction of increased intracranial pressure
     Dosage: UNK
     Route: 065
  12. FRUCTOSE\GLYCERIN [Suspect]
     Active Substance: FRUCTOSE\GLYCERIN
     Indication: Reduction of increased intracranial pressure
     Dosage: UNK
     Route: 065
  13. SULFAMETHOXAZOLE [Concomitant]
     Active Substance: SULFAMETHOXAZOLE
     Indication: Interstitial lung disease
     Dosage: UNK; (MAINTENANCE THERAPY)
     Route: 065

REACTIONS (4)
  - Nervous system disorder [Recovered/Resolved]
  - Mucormycosis [Recovered/Resolved]
  - Brain abscess [Unknown]
  - Drug ineffective for unapproved indication [Unknown]

NARRATIVE: CASE EVENT DATE: 20210801
